FAERS Safety Report 10217205 (Version 1)
Quarter: 2014Q2

REPORT INFORMATION
  Report Type: Spontaneous
  Country: DK (occurrence: DK)
  Receive Date: 20140604
  Receipt Date: 20140604
  Transmission Date: 20141212
  Serious: Yes (Other)
  Sender: FDA-Public Use
  Company Number: DK-ACTAVIS-2014-11609

PATIENT
  Age: 82 Year
  Sex: Female
  Weight: 69 kg

DRUGS (1)
  1. LETROZOLE ARROW [Suspect]
     Indication: ANTIOESTROGEN THERAPY
     Dosage: 2.5 MG, DAILY
     Route: 048
     Dates: start: 20140108, end: 20140405

REACTIONS (2)
  - Muscle atrophy [Not Recovered/Not Resolved]
  - Ligament injury [Not Recovered/Not Resolved]
